FAERS Safety Report 5349269-X (Version None)
Quarter: 2007Q2

REPORT INFORMATION
  Report Type: 
  Country: None (occurrence: None)
  Receive Date: 20070607
  Receipt Date: 20070604
  Transmission Date: 20071010
  Serious: Yes (Life-Threatening, Hospitalization, Other)
  Sender: FDA-Public Use
  Company Number: A0646626A

PATIENT
  Age: 12 Year
  Sex: Male
  Weight: 35 kg

DRUGS (2)
  1. ZOFRAN [Suspect]
     Dosage: 2MG SINGLE DOSE
     Route: 042
     Dates: start: 20070213
  2. NO CONCURRENT MEDICATION [Concomitant]

REACTIONS (7)
  - BURNING SENSATION [None]
  - CARDIAC ARREST [None]
  - COGNITIVE DISORDER [None]
  - CONVULSION [None]
  - ELECTROCARDIOGRAM QT PROLONGED [None]
  - LUNG INFILTRATION [None]
  - PNEUMOTHORAX [None]
